FAERS Safety Report 5224759-9 (Version None)
Quarter: 2007Q1

REPORT INFORMATION
  Report Type: 
  Country: None (occurrence: None)
  Receive Date: 20070129
  Receipt Date: 20070129
  Transmission Date: 20070707
  Serious: Yes (Congenital Anomaly)
  Sender: FDA-Public Use
  Company Number: None

PATIENT
  Sex: Male
  Weight: 3.2886 kg

DRUGS (2)
  1. ZOLOFT [Suspect]
     Indication: DEPRESSION
     Dosage: PO   THROUGHOUT PREGNANCY
     Route: 048
  2. DEPAKOTE [Suspect]
     Indication: BIPOLAR DISORDER
     Dosage: PO   THROUGHOUT PREGNANCY
     Route: 048

REACTIONS (4)
  - CONGENITAL ANOMALY [None]
  - DRUG EXPOSURE DURING PREGNANCY [None]
  - POLYDACTYLY [None]
  - SYNDACTYLY [None]
